FAERS Safety Report 4319547-1 (Version None)
Quarter: 2004Q1

REPORT INFORMATION
  Report Type: 
  Country: None (occurrence: None)
  Receive Date: 20040316
  Receipt Date: 20040302
  Transmission Date: 20041129
  Serious: Yes (Other)
  Sender: FDA-Public Use
  Company Number: USA040360687

PATIENT
  Age: 37 Year
  Sex: Male
  Weight: 59 kg

DRUGS (3)
  1. HUMALOG [Suspect]
     Dates: start: 19960101
  2. HUMULIN N [Suspect]
     Dosage: 20 U DAY
     Dates: start: 19960101, end: 20020101
  3. NOVOLIN N [Concomitant]

REACTIONS (2)
  - BLOOD GLUCOSE INCREASED [None]
  - PHARMACEUTICAL PRODUCT COMPLAINT [None]
